FAERS Safety Report 13031195 (Version 3)
Quarter: 2016Q4

REPORT INFORMATION
  Report Type: Spontaneous
  Country: CA (occurrence: CA)
  Receive Date: 20161215
  Receipt Date: 20161227
  Transmission Date: 20170207
  Serious: Yes (Hospitalization, Other)
  Sender: FDA-Public Use
  Company Number: CA-AMGEN-CANSP2016176342

PATIENT
  Age: 54 Year
  Sex: Male

DRUGS (2)
  1. ENBREL [Suspect]
     Active Substance: ETANERCEPT
     Indication: RHEUMATOID ARTHRITIS
     Dosage: UNK
     Route: 065
     Dates: end: 20161023
  2. METHOTREXATE. [Concomitant]
     Active Substance: METHOTREXATE
     Indication: RHEUMATOID ARTHRITIS
     Dosage: 20 MG, UNK
     Route: 065
     Dates: start: 20130205

REACTIONS (5)
  - Drug ineffective [Unknown]
  - Infection [Unknown]
  - Hepatitis B surface antibody positive [Unknown]
  - Rheumatoid arthritis [Unknown]
  - Pneumonia [Unknown]

NARRATIVE: CASE EVENT DATE: 201310
